FAERS Safety Report 7921799-3 (Version None)
Quarter: 2011Q4

REPORT INFORMATION
  Report Type: 
  Country: None (occurrence: None)
  Receive Date: 20111117
  Receipt Date: 20111107
  Transmission Date: 20120403
  Serious: Yes (Death)
  Sender: FDA-Public Use
  Company Number: NL-GLAXOSMITHKLINE-Z0012700A

PATIENT
  Sex: Male

DRUGS (5)
  1. TOPOTECAN [Suspect]
     Indication: NEOPLASM
     Dosage: 15MG CUMULATIVE DOSE
     Route: 048
     Dates: start: 20111018, end: 20111022
  2. ACETAMINOPHEN [Concomitant]
     Indication: PAIN
     Dosage: 1000MG TWICE PER DAY
     Route: 042
     Dates: start: 20111105, end: 20111105
  3. METOCLOPRAMIDE [Concomitant]
     Indication: VOMITING
     Dosage: 10MG PER DAY
     Route: 042
     Dates: start: 20111105, end: 20111105
  4. DIPIDOLOR [Concomitant]
     Indication: BACK PAIN
     Dosage: 10MG SINGLE DOSE
     Route: 042
     Dates: start: 20111105, end: 20111105
  5. PAZOPANIB [Suspect]
     Indication: NEOPLASM
     Dosage: 23200MG CUMULATIVE DOSE
     Route: 048
     Dates: start: 20111004, end: 20111101

REACTIONS (4)
  - METABOLIC ACIDOSIS [None]
  - PANCYTOPENIA [None]
  - PNEUMONIA [None]
  - DEHYDRATION [None]
